FAERS Safety Report 25232487 (Version 2)
Quarter: 2025Q2

REPORT INFORMATION
  Report Type: Report from Study
  Country: CA (occurrence: CA)
  Receive Date: 20250423
  Receipt Date: 20250430
  Transmission Date: 20250717
  Serious: Yes (Other)
  Sender: ABBVIE
  Company Number: CA-ABBVIE-6240189

PATIENT
  Age: 25 Year
  Sex: Female

DRUGS (1)
  1. SKYRIZI [Suspect]
     Active Substance: RISANKIZUMAB-RZAA
     Indication: Product used for unknown indication
     Route: 042

REACTIONS (3)
  - Abscess drainage [Recovering/Resolving]
  - Incision site haemorrhage [Recovering/Resolving]
  - Incision site discharge [Recovering/Resolving]

NARRATIVE: CASE EVENT DATE: 20250324
